FAERS Safety Report 11780308 (Version 1)
Quarter: 2015Q4

REPORT INFORMATION
  Report Type: Spontaneous
  Country: US (occurrence: US)
  Receive Date: 20151126
  Receipt Date: 20151126
  Transmission Date: 20160305
  Serious: No
  Sender: FDA-Public Use
  Company Number: US-JNJFOC-20151020951

PATIENT
  Age: 24 Year
  Sex: Female
  Weight: 49.9 kg

DRUGS (1)
  1. TYLENOL EXTRA STRENGTH [Suspect]
     Active Substance: ACETAMINOPHEN
     Indication: HEADACHE
     Dosage: 1 TO 2 CAPLETS EVERY WEEK OR EVERY OTHER WEEK
     Route: 048

REACTIONS (3)
  - Inappropriate schedule of drug administration [Unknown]
  - Product physical issue [Unknown]
  - Product identification number issue [Unknown]
